FAERS Safety Report 5397961-3 (Version None)
Quarter: 2007Q3

REPORT INFORMATION
  Report Type: 
  Country: None (occurrence: None)
  Receive Date: 20070726
  Receipt Date: 20070716
  Transmission Date: 20080115
  Serious: Yes (Hospitalization)
  Sender: FDA-Public Use
  Company Number: DK-ABBOTT-07P-044-0374715-00

PATIENT
  Sex: Male
  Weight: 70 kg

DRUGS (5)
  1. HUMIRA [Suspect]
     Indication: SPONDYLOARTHROPATHY
     Route: 058
     Dates: start: 20061129, end: 20070316
  2. METHOTREXATE [Concomitant]
     Indication: SPONDYLOARTHROPATHY
     Route: 048
     Dates: start: 20030226
  3. BUPRENORPHINE HCL [Concomitant]
     Indication: PAIN
     Route: 060
     Dates: start: 20031104
  4. ACETAMINOPHEN [Concomitant]
     Indication: PAIN
     Route: 048
     Dates: start: 20030101
  5. FOLSYRE [Concomitant]
     Indication: FOLATE DEFICIENCY
     Route: 048
     Dates: start: 20030226

REACTIONS (5)
  - ASTHENIA [None]
  - COORDINATION ABNORMAL [None]
  - GAIT DISTURBANCE [None]
  - PARAESTHESIA [None]
  - POLYNEUROPATHY [None]
